FAERS Safety Report 22837842 (Version 3)
Quarter: 2023Q4

REPORT INFORMATION
  Report Type: Spontaneous
  Country: BR (occurrence: BR)
  Receive Date: 20230818
  Receipt Date: 20231128
  Transmission Date: 20240109
  Serious: Yes (Hospitalization, Other)
  Sender: FDA-Public Use
  Company Number: BR-GLAXOSMITHKLINE-BR2022AMR021498

PATIENT

DRUGS (6)
  1. BENLYSTA [Suspect]
     Active Substance: BELIMUMAB
     Indication: Systemic lupus erythematosus
     Dosage: UNK, STARTED TREATMENT WITH BENLYSTA FOUR YEARS AGO
     Route: 042
     Dates: start: 2018
  2. BENLYSTA [Suspect]
     Active Substance: BELIMUMAB
     Dosage: 120 MG X 7  ONCE A MONTH
     Route: 042
     Dates: start: 20220201
  3. PREDNISONE [Concomitant]
     Active Substance: PREDNISONE
     Indication: Swelling
     Dosage: 2.5 MG
  4. PREDNISONE [Concomitant]
     Active Substance: PREDNISONE
     Dosage: 5 MG, QD
  5. HYDROXYCHLOROQUINE SULFATE [Concomitant]
     Active Substance: HYDROXYCHLOROQUINE SULFATE
     Indication: Product used for unknown indication
     Dosage: 400 MG, QD
  6. MYCOPHENOLIC ACID [Concomitant]
     Active Substance: MYCOPHENOLIC ACID
     Indication: Product used for unknown indication
     Dosage: 500 MG, BID

REACTIONS (23)
  - Dengue fever [Recovered/Resolved]
  - Pulmonary hypertension [Not Recovered/Not Resolved]
  - Swelling [Recovered/Resolved]
  - Headache [Recovered/Resolved]
  - Influenza [Recovered/Resolved]
  - Pain [Recovered/Resolved]
  - Rhinorrhoea [Recovered/Resolved]
  - Nasal congestion [Recovered/Resolved]
  - Sinusitis [Recovered/Resolved]
  - Productive cough [Recovered/Resolved]
  - Cough [Recovered/Resolved]
  - Oropharyngeal pain [Recovered/Resolved]
  - Throat tightness [Unknown]
  - Pharyngeal inflammation [Recovered/Resolved]
  - COVID-19 [Recovered/Resolved]
  - Pyrexia [Recovered/Resolved]
  - Chills [Recovered/Resolved]
  - Influenza like illness [Recovered/Resolved]
  - Condition aggravated [Unknown]
  - Product storage error [Unknown]
  - Product dose omission issue [Unknown]
  - Inappropriate schedule of product administration [Unknown]
  - Product administration error [Unknown]

NARRATIVE: CASE EVENT DATE: 20221101
